FAERS Safety Report 7386250-3 (Version None)
Quarter: 2011Q1

REPORT INFORMATION
  Report Type: 
  Country: None (occurrence: None)
  Receive Date: 20110323
  Receipt Date: 20110309
  Transmission Date: 20110831
  Serious: Yes (Other)
  Sender: FDA-Public Use
  Company Number: 021934

PATIENT
  Age: 77 Year
  Sex: Female

DRUGS (2)
  1. LACOSAMIDE [Suspect]
     Indication: PARTIAL SEIZURES
     Dosage: 300 MG, QD;
  2. OXCARBAZEPINE [Suspect]
     Indication: EPILEPSY
     Dosage: 750 MG QD, 600 MG QD, 300 MG QD;

REACTIONS (2)
  - DIPLOPIA [None]
  - NEUROTOXICITY [None]
